FAERS Safety Report 10195914 (Version 2)
Quarter: 2014Q2

REPORT INFORMATION
  Report Type: Spontaneous
  Country: IT (occurrence: None)
  Receive Date: 20140522
  Receipt Date: 20140618
  Transmission Date: 20141212
  Serious: Yes (Other)
  Sender: FDA-Public Use
  Company Number: 2339593

PATIENT
  Age: 50 Year
  Sex: Female

DRUGS (2)
  1. DOCETAXEL [Suspect]
     Indication: BREAST NEOPLASM
     Dosage: TOTAL ?(NOT OTHERWISE SPECIFIED)
     Route: 042
     Dates: start: 20140428, end: 20140428
  2. SALINE /00075401/ [Concomitant]

REACTIONS (4)
  - Vertigo [None]
  - Hyperhidrosis [None]
  - Chest discomfort [None]
  - Infusion related reaction [None]
